FAERS Safety Report 4949581-X (Version None)
Quarter: 2006Q1

REPORT INFORMATION
  Report Type: 
  Country: None (occurrence: None)
  Receive Date: 20060315
  Receipt Date: 20060224
  Transmission Date: 20060701
  Serious: Yes (Hospitalization, Other)
  Sender: FDA-Public Use
  Company Number: US200602005181

PATIENT
  Age: 18 Year
  Sex: Female

DRUGS (4)
  1. ZYPREXA [Suspect]
     Indication: PSYCHOTIC DISORDER
     Dosage: 10 MG, DAILY (1/D)
     Dates: start: 20060129
  2. PROZAC [Suspect]
     Indication: DEPRESSION
     Dates: start: 20060201
  3. RITALIN [Concomitant]
  4. RISPERDAL /SWE/(RISPERIDONE) [Concomitant]

REACTIONS (7)
  - FAECAL INCONTINENCE [None]
  - LOSS OF CONSCIOUSNESS [None]
  - MALAISE [None]
  - MANIA [None]
  - PSYCHOTIC DISORDER [None]
  - SOMNOLENCE [None]
  - URINARY INCONTINENCE [None]
